FAERS Safety Report 21078229 (Version 1)
Quarter: 2022Q3

REPORT INFORMATION
  Report Type: Report from Study
  Country: US (occurrence: US)
  Receive Date: 20220713
  Receipt Date: 20220713
  Transmission Date: 20221026
  Serious: No
  Sender: FDA-Public Use
  Company Number: US-VANDA PHARMACEUTICALS, INC-2021TASUS005490

PATIENT
  Sex: Female

DRUGS (3)
  1. HETLIOZ [Suspect]
     Active Substance: TASIMELTEON
     Indication: Product used for unknown indication
     Dosage: 20 MILLIGRAM, QD
     Route: 048
     Dates: start: 202104
  2. XIFAXAN [Suspect]
     Active Substance: RIFAXIMIN
     Indication: Crohn^s disease
     Dosage: UNK
     Dates: start: 202111
  3. UNSPECIFIED INGREDIENT [Suspect]
     Active Substance: UNSPECIFIED INGREDIENT
     Indication: COVID-19 immunisation

REACTIONS (3)
  - Fatigue [Unknown]
  - Pain in extremity [Unknown]
  - Peripheral swelling [Unknown]
